FAERS Safety Report 8874666 (Version 1)
Quarter: 2012Q4

REPORT INFORMATION
  Report Type: 
  Country: US (occurrence: US)
  Receive Date: 20121030
  Receipt Date: 20121030
  Transmission Date: 20130627
  Serious: No
  Sender: FDA-Public Use
  Company Number: US-AMGEN-USASP2012039782

PATIENT
  Age: 46 Year
  Sex: Female
  Weight: 111.11 kg

DRUGS (27)
  1. ENBREL [Suspect]
     Indication: PRODUCT USED FOR UNKNOWN INDICATION
     Dosage: 25 mg, 2 times/wk
     Route: 058
  2. HUMALOG [Concomitant]
     Dosage: 100 ml, UNK
  3. PROTONIX [Concomitant]
     Dosage: 20 mg, UNK
  4. RAMIPRIL [Concomitant]
     Dosage: 1.25 mg, UNK
  5. LEUCOVORIN CA [Concomitant]
     Dosage: 25 mg, UNK
  6. PREDNISONE [Concomitant]
     Dosage: 1 mg, UNK
  7. SLOW FE [Concomitant]
     Dosage: 142 mg, UNK
  8. ZYRTEC [Concomitant]
     Dosage: 5 mg, UNK
  9. LANTUS [Concomitant]
     Dosage: 100/ml
  10. GABAPENTIN [Concomitant]
     Dosage: 100 mg, UNK
  11. CITALOPRAM [Concomitant]
     Dosage: 10 mg, UNK
  12. SIMVASTATIN [Concomitant]
     Dosage: 5 mg, UNK
  13. HYDROXYCHLOROQUINE [Concomitant]
     Dosage: 200 mg, UNK
  14. FOLIC ACID [Concomitant]
     Dosage: 1 mg, UNK
  15. HYDROCHLOROTH [Concomitant]
     Dosage: 12.5 mg, UNK
  16. LEVOTHYROXIN [Concomitant]
     Dosage: 25 mug, UNK
  17. AMITRIPTYLIN [Concomitant]
     Dosage: 10 mg, UNK
  18. ASPIRIN [Concomitant]
     Dosage: 81 mg, UNK
  19. VITAMIN C                          /00008001/ [Concomitant]
     Dosage: 500 mg, UNK
  20. FISH OIL [Concomitant]
     Dosage: UNK
  21. VITAMIN D /00107901/ [Concomitant]
     Dosage: 1000 UNK, UNK
  22. ACTOS [Concomitant]
     Dosage: 15 mg, UNK
  23. MULTIVITAMINS PLUS IRON [Concomitant]
     Dosage: UNK
  24. CALCIUM D                          /00944201/ [Concomitant]
     Dosage: UNK
  25. VITAMIN B COMPLEX [Concomitant]
     Dosage: 50 UNK, UNK
  26. ACIDOPHILUS [Concomitant]
     Dosage: 10 mg, UNK
  27. METHOTREXATE [Concomitant]
     Dosage: 20 mg, UNK

REACTIONS (2)
  - Stomatitis [Unknown]
  - Urinary tract infection [Unknown]
